FAERS Safety Report 5797182-6 (Version None)
Quarter: 2008Q3

REPORT INFORMATION
  Report Type: 
  Country: None (occurrence: None)
  Receive Date: 20080701
  Receipt Date: 20080619
  Transmission Date: 20090109
  Serious: Yes (Other)
  Sender: FDA-Public Use
  Company Number: JP-PFIZER INC-2008052230

PATIENT
  Age: 85 Year
  Sex: Male

DRUGS (2)
  1. ZYVOX [Suspect]
     Indication: PNEUMONIA STAPHYLOCOCCAL
     Route: 042
  2. BIAPENEM [Concomitant]

REACTIONS (1)
  - ENTEROCOCCAL INFECTION [None]
